FAERS Safety Report 8201239-X (Version None)
Quarter: 2012Q1

REPORT INFORMATION
  Report Type: 
  Country: None (occurrence: None)
  Receive Date: 20120312
  Receipt Date: 20120305
  Transmission Date: 20120608
  Serious: Yes (Hospitalization, Other)
  Sender: FDA-Public Use
  Company Number: PHHY2011JP86982

PATIENT
  Sex: Male

DRUGS (6)
  1. LOXONIN [Concomitant]
     Dosage: 180 MG, UNK
     Route: 048
     Dates: start: 20110825
  2. ZOMETA [Suspect]
     Indication: METASTASES TO BONE
     Dosage: 4 MG PER ADMINISTRATION EVERY 4 WEEKS
     Route: 041
     Dates: start: 20110825, end: 20110922
  3. ISALON [Concomitant]
     Dosage: 300 MG, UNK
     Route: 048
     Dates: start: 20110825
  4. ESTRACYT [Suspect]
     Dosage: 470 MG, UNK
     Route: 048
     Dates: start: 20110825, end: 20111208
  5. DECADRON [Concomitant]
     Dosage: 0.5 MG, UNK
     Route: 048
     Dates: start: 20111208
  6. LEUPROLIDE ACETATE [Concomitant]
     Dosage: UNK UKN, UNK
     Route: 058
     Dates: start: 20100806

REACTIONS (9)
  - ALANINE AMINOTRANSFERASE INCREASED [None]
  - HAEMATOCRIT DECREASED [None]
  - BLOOD ALBUMIN DECREASED [None]
  - ASPARTATE AMINOTRANSFERASE INCREASED [None]
  - WHITE BLOOD CELL COUNT INCREASED [None]
  - GAIT DISTURBANCE [None]
  - RED BLOOD CELL COUNT DECREASED [None]
  - FEMORAL NECK FRACTURE [None]
  - ANAEMIA [None]
